FAERS Safety Report 15189778 (Version 3)
Quarter: 2018Q3

REPORT INFORMATION
  Report Type: Spontaneous
  Country: IT (occurrence: IT)
  Receive Date: 20180724
  Receipt Date: 20180724
  Transmission Date: 20181010
  Serious: Yes (Hospitalization)
  Sender: FDA-Public Use
  Company Number: PHHY2017IT130223

PATIENT
  Age: 67 Year
  Sex: Male

DRUGS (5)
  1. THIOCOLCHICOSIDE [Suspect]
     Active Substance: THIOCOLCHICOSIDE
     Indication: ARTHRALGIA
  2. DICLOFENAC [Suspect]
     Active Substance: DICLOFENAC
     Indication: ARTHRALGIA
  3. DICLOFENAC [Suspect]
     Active Substance: DICLOFENAC
     Indication: BONE PAIN
     Dosage: 0.15 MG, UNK
     Route: 030
  4. THIOCOLCHICOSIDE [Suspect]
     Active Substance: THIOCOLCHICOSIDE
     Indication: BONE PAIN
     Dosage: 2 MG/ML, UNK
     Route: 065
  5. DICLOFENAC [Suspect]
     Active Substance: DICLOFENAC
     Indication: BONE PAIN
     Dosage: UNK
     Route: 065

REACTIONS (6)
  - Erythema [Unknown]
  - Troponin I increased [Unknown]
  - Kounis syndrome [Unknown]
  - Anaphylactic reaction [Unknown]
  - Urticaria [Unknown]
  - Tryptase increased [Unknown]
